FAERS Safety Report 6607157-2 (Version None)
Quarter: 2010Q1

REPORT INFORMATION
  Report Type: 
  Country: None (occurrence: None)
  Receive Date: 20100212
  Receipt Date: 20091021
  Transmission Date: 20100710
  Serious: No
  Sender: FDA-Public Use
  Company Number: 1000009621

PATIENT
  Age: 49 Year
  Sex: Male

DRUGS (7)
  1. SAVELLA [Suspect]
     Indication: FIBROMYALGIA
     Dosage: 12.5 MG (12.5 MG, 1 IN 1 D); 25; 50; 100 (12.5;25; 50 MG, 2 IN 1 D) MG ORAL
     Route: 048
     Dates: start: 20090810, end: 20090810
  2. SAVELLA [Suspect]
     Indication: FIBROMYALGIA
     Dosage: 12.5 MG (12.5 MG, 1 IN 1 D); 25; 50; 100 (12.5;25; 50 MG, 2 IN 1 D) MG ORAL
     Route: 048
     Dates: start: 20090811, end: 20090812
  3. SAVELLA [Suspect]
     Indication: FIBROMYALGIA
     Dosage: 12.5 MG (12.5 MG, 1 IN 1 D); 25; 50; 100 (12.5;25; 50 MG, 2 IN 1 D) MG ORAL
     Route: 048
     Dates: start: 20090813, end: 20090816
  4. SAVELLA [Suspect]
     Indication: FIBROMYALGIA
     Dosage: 12.5 MG (12.5 MG, 1 IN 1 D); 25; 50; 100 (12.5;25; 50 MG, 2 IN 1 D) MG ORAL
     Route: 048
     Dates: start: 20090817, end: 20091008
  5. SAVELLA [Suspect]
     Indication: FIBROMYALGIA
     Dates: start: 20091009, end: 20091001
  6. LYRICA [Concomitant]
  7. IBUPROFEN [Concomitant]

REACTIONS (1)
  - PROSTATITIS [None]
